FAERS Safety Report 20326698 (Version 3)
Quarter: 2022Q1

REPORT INFORMATION
  Report Type: Spontaneous
  Country: US (occurrence: US)
  Receive Date: 20220112
  Receipt Date: 20220202
  Transmission Date: 20220423
  Serious: No
  Sender: FDA-Public Use
  Company Number: US-MYLANLABS-2021M1091719

PATIENT
  Age: 63 Year
  Sex: Female
  Weight: 55.34 kg

DRUGS (3)
  1. ESTRADIOL TRANSDERMAL SYSTEM [Suspect]
     Active Substance: ESTRADIOL
     Indication: Product used for unknown indication
     Dosage: 0.05 MILLIGRAM, QD
     Route: 062
     Dates: end: 20211119
  2. PROGESTERONE [Concomitant]
     Active Substance: PROGESTERONE
     Indication: Blood oestrogen abnormal
     Dosage: 97 MILLIGRAM, QD
  3. Procid [Concomitant]
     Dosage: 20 MILLIGRAM, BID

REACTIONS (9)
  - Acne [Recovered/Resolved]
  - Allergic reaction to excipient [Unknown]
  - Application site erythema [Unknown]
  - Application site rash [Unknown]
  - Application site irritation [Unknown]
  - Application site scab [Unknown]
  - Product adhesion issue [Unknown]
  - Drug ineffective [Unknown]
  - Product residue present [Unknown]

NARRATIVE: CASE EVENT DATE: 20211001
